FAERS Safety Report 13610412 (Version 1)
Quarter: 2017Q2

REPORT INFORMATION
  Report Type: Spontaneous
  Country: US (occurrence: US)
  Receive Date: 20170602
  Receipt Date: 20170602
  Transmission Date: 20170830
  Serious: Yes (Hospitalization)
  Sender: FDA-Public Use
  Company Number: None

PATIENT
  Age: 53 Year
  Sex: Female

DRUGS (1)
  1. NEXAVAR [Suspect]
     Active Substance: SORAFENIB
     Indication: HEPATOCELLULAR CARCINOMA
     Dosage: 400MG (200MG TABLETS) TWICE A DAY BY MOUTH
     Route: 048
     Dates: start: 20170321

REACTIONS (2)
  - Therapy cessation [None]
  - Urinary tract infection [None]

NARRATIVE: CASE EVENT DATE: 20170530
